FAERS Safety Report 12281212 (Version 1)
Quarter: 2016Q2

REPORT INFORMATION
  Report Type: Spontaneous
  Country: US (occurrence: None)
  Receive Date: 20160418
  Receipt Date: 20160418
  Transmission Date: 20160815
  Serious: Yes (Life-Threatening)
  Sender: FDA-Public Use
  Company Number: None

PATIENT
  Age: 59 Year
  Sex: Male
  Weight: 160.6 kg

DRUGS (2)
  1. AZITHROMYCIN, 500 MG [Suspect]
     Active Substance: AZITHROMYCIN ANHYDROUS
     Indication: PNEUMONIA
     Route: 041
     Dates: start: 20160414, end: 20160414
  2. DILTIAZEM, 125 MG/125ML [Suspect]
     Active Substance: DILTIAZEM
     Indication: ATRIAL FIBRILLATION
     Dosage: 15 MG 15MG/HR INTRAVENOUS DRIP
     Route: 041
     Dates: start: 20160413, end: 20160414

REACTIONS (5)
  - Toxicity to various agents [None]
  - Unresponsive to stimuli [None]
  - Drug prescribing error [None]
  - Inhibitory drug interaction [None]
  - Hypotension [None]

NARRATIVE: CASE EVENT DATE: 20160414
